FAERS Safety Report 4349360-0 (Version None)
Quarter: 2004Q2

REPORT INFORMATION
  Report Type: 
  Country: None (occurrence: None)
  Receive Date: 20040428
  Receipt Date: 20040420
  Transmission Date: 20050107
  Serious: Yes (Other)
  Sender: FDA-Public Use
  Company Number: PHBS2004US05579

PATIENT
  Age: 47 Year
  Sex: Female

DRUGS (3)
  1. CARBAMAZEPINE [Suspect]
     Indication: BIPOLAR DISORDER
     Dosage: 1600 MG/DAY
     Route: 065
  2. CARBAMAZEPINE [Suspect]
     Dosage: 800 MG/DAY
     Route: 065
  3. DILTIAZEM [Suspect]
     Indication: TACHYCARDIA
     Dosage: 120 MG/DAY
     Route: 065

REACTIONS (10)
  - AGITATION [None]
  - ATAXIA [None]
  - CEREBELLAR SYNDROME [None]
  - CONFUSIONAL STATE [None]
  - DISORIENTATION [None]
  - DRUG INTERACTION [None]
  - DRUG LEVEL INCREASED [None]
  - DYSARTHRIA [None]
  - NEUROTOXICITY [None]
  - OPHTHALMOPLEGIA [None]
